FAERS Safety Report 7549045-3 (Version None)
Quarter: 2011Q2

REPORT INFORMATION
  Report Type: 
  Country: None (occurrence: None)
  Receive Date: 20110615
  Receipt Date: 20110608
  Transmission Date: 20111010
  Serious: Yes (Hospitalization)
  Sender: FDA-Public Use
  Company Number: CA-ROCHE-781762

PATIENT
  Sex: Male

DRUGS (3)
  1. COPEGUS [Suspect]
     Route: 048
     Dates: start: 20110604
  2. PEGASYS [Suspect]
     Indication: HEPATITIS C
     Dosage: FREQUENCY: Q WEEKLY.
     Route: 058
     Dates: start: 20110126, end: 20110525
  3. COPEGUS [Suspect]
     Indication: HEPATITIS C
     Route: 048
     Dates: start: 20110126, end: 20110603

REACTIONS (2)
  - INTESTINAL PERFORATION [None]
  - ANAEMIA [None]
